FAERS Safety Report 15604194 (Version 5)
Quarter: 2020Q2

REPORT INFORMATION
  Report Type: Spontaneous
  Country: US (occurrence: US)
  Receive Date: 20181110
  Receipt Date: 20200602
  Transmission Date: 20200713
  Serious: Yes (Death, Hospitalization)
  Sender: FDA-Public Use
  Company Number: US-JNJFOC-20181040064

PATIENT
  Age: 90 Year
  Sex: Male

DRUGS (26)
  1. ATENOLOL. [Concomitant]
     Active Substance: ATENOLOL
     Indication: CARDIAC DISORDER
     Route: 065
  2. PREDNISONE. [Concomitant]
     Active Substance: PREDNISONE
     Indication: ANTIINFLAMMATORY THERAPY
     Route: 065
  3. ERYTHROMYCIN. [Concomitant]
     Active Substance: ERYTHROMYCIN
  4. MOXIFLOXACIN. [Concomitant]
     Active Substance: MOXIFLOXACIN
     Dosage: 1 DROP IN THE BOTH EYES EVERY 10 MINS FOR 2 HOURS
     Route: 047
  5. COENZYME Q10 [Concomitant]
     Active Substance: UBIDECARENONE
  6. XGEVA [Concomitant]
     Active Substance: DENOSUMAB
     Indication: PROSTATE CANCER METASTATIC
     Route: 065
  7. PRAVASTATIN. [Concomitant]
     Active Substance: PRAVASTATIN
     Indication: BLOOD CHOLESTEROL
     Route: 065
  8. VITAMIN D                          /00107901/ [Concomitant]
     Active Substance: ERGOCALCIFEROL
     Dosage: MCG
  9. FAMOTIDINE. [Concomitant]
     Active Substance: FAMOTIDINE
     Indication: HYPERCHLORHYDRIA
     Route: 065
  10. VITAMIN C [Concomitant]
     Active Substance: ASCORBIC ACID
     Route: 065
  11. ZYTIGA [Suspect]
     Active Substance: ABIRATERONE ACETATE
     Route: 048
  12. MEMANTINE. [Concomitant]
     Active Substance: MEMANTINE
     Indication: DEMENTIA
     Route: 065
  13. BENZONATATE. [Concomitant]
     Active Substance: BENZONATATE
     Indication: COUGH
     Route: 065
  14. OCUVITE [Concomitant]
     Active Substance: VITAMINS
     Indication: EYE DISORDER
     Route: 065
  15. REFRESH LIQUIGEL [Concomitant]
     Active Substance: CARBOXYMETHYLCELLULOSE SODIUM
     Indication: EYE DISORDER
     Route: 047
  16. VITAMIN K [Concomitant]
     Active Substance: PHYTONADIONE
     Dosage: 2100 MCG
  17. RESVERATROL PLUS VINOGRAPE [Concomitant]
  18. ZYTIGA [Suspect]
     Active Substance: ABIRATERONE ACETATE
     Indication: PROSTATE CANCER METASTATIC
     Route: 048
  19. DONAPRIL [Concomitant]
     Indication: DEMENTIA
     Route: 065
  20. OFLOXACIN                          /00731802/ [Concomitant]
     Indication: MACULAR DEGENERATION
     Route: 065
  21. PRAVASTATIN. [Concomitant]
     Active Substance: PRAVASTATIN
     Indication: CARDIAC DISORDER
  22. AMOXICILINA                        /00249602/ [Concomitant]
     Active Substance: AMOXICILLIN
     Dosage: TAKE BEFORE GOING TO DENTIST
     Route: 048
  23. MAXIVISION EYE FORMULA [Concomitant]
     Indication: EYE DISORDER
     Dosage: EYE VITAMIN
  24. FEROSUL [Concomitant]
     Active Substance: FERROUS SULFATE
     Indication: MINERAL SUPPLEMENTATION
     Route: 065
  25. PANTOPRAZOLE [Concomitant]
     Active Substance: PANTOPRAZOLE
     Indication: HYPERCHLORHYDRIA
     Dosage: 1 IN MORNING ON EMPTY STOMACH
     Route: 065
  26. MAXX OMEGA 3 [Concomitant]

REACTIONS (3)
  - Tooth infection [Recovered/Resolved]
  - Death [Fatal]
  - Hospitalisation [Unknown]

NARRATIVE: CASE EVENT DATE: 20200417
